FAERS Safety Report 22200517 (Version 1)
Quarter: 2023Q2

REPORT INFORMATION
  Report Type: Spontaneous
  Country: IN (occurrence: IN)
  Receive Date: 20230412
  Receipt Date: 20230412
  Transmission Date: 20230722
  Serious: Yes (Other)
  Sender: FDA-Public Use
  Company Number: IN-SUN PHARMACEUTICAL INDUSTRIES LTD-2023R1-383771

PATIENT
  Age: 7 Year
  Sex: Female

DRUGS (4)
  1. HYDROXYCHLOROQUINE [Suspect]
     Active Substance: HYDROXYCHLOROQUINE
     Indication: Selective IgA immunodeficiency
     Dosage: 5 MILLIGRAM/KILOGRAM, DAILY
     Route: 065
  2. PREDNISOLONE [Suspect]
     Active Substance: PREDNISOLONE
     Indication: Selective IgA immunodeficiency
     Dosage: 2 MILLIGRAM/KILOGRAM, DAILY
     Route: 048
  3. ASPIRIN [Concomitant]
     Active Substance: ASPIRIN
     Indication: Selective IgA immunodeficiency
     Dosage: 4 MILLIGRAM/KILOGRAM, DAILY
     Route: 065
  4. AZATHIOPRINE [Concomitant]
     Active Substance: AZATHIOPRINE
     Indication: Selective IgA immunodeficiency
     Dosage: 2 MILLIGRAM/KILOGRAM, DAILY
     Route: 065

REACTIONS (5)
  - Herpes zoster [Unknown]
  - Staphylococcal infection [Unknown]
  - Klebsiella infection [Unknown]
  - Arthritis [Unknown]
  - Arthralgia [Unknown]
